FAERS Safety Report 18590673 (Version 1)
Quarter: 2020Q4

REPORT INFORMATION
  Report Type: Spontaneous
  Country: US (occurrence: US)
  Receive Date: 20201208
  Receipt Date: 20201208
  Transmission Date: 20210114
  Serious: No
  Sender: FDA-Public Use
  Company Number: None

PATIENT
  Age: 15 Year
  Sex: Male

DRUGS (1)
  1. HUMIRA [Suspect]
     Active Substance: ADALIMUMAB
     Indication: TERMINAL ILEITIS
     Dosage: ?          OTHER FREQUENCY:EVERY 15 DAYS;?
     Route: 058
     Dates: start: 20201123

REACTIONS (2)
  - Product contamination [None]
  - Therapy interrupted [None]

NARRATIVE: CASE EVENT DATE: 20201207
